FAERS Safety Report 6127328-1 (Version None)
Quarter: 2009Q1

REPORT INFORMATION
  Report Type: 
  Country: None (occurrence: None)
  Receive Date: 20090319
  Receipt Date: 20090311
  Transmission Date: 20090719
  Serious: Yes (Hospitalization)
  Sender: FDA-Public Use
  Company Number: 2009SP005326

PATIENT
  Age: 58 Year
  Sex: Male
  Weight: 112 kg

DRUGS (14)
  1. TEMOZOLOMIDE [Suspect]
     Indication: GLIOBLASTOMA MULTIFORME
     Dosage: 200 MG/M2; PO
     Route: 048
     Dates: start: 20090223, end: 20090227
  2. BEVACIZUMAB [Suspect]
     Indication: GLIOBLASTOMA MULTIFORME
     Dosage: 10 MG/KG; QD
     Dates: start: 20090223
  3. IRINOTECAN HCL [Suspect]
     Indication: GLIOBLASTOMA MULTIFORME
     Dosage: 125 MG; QOW
     Dates: start: 20090223
  4. VYTORIN [Concomitant]
  5. LEXAPRO [Concomitant]
  6. DIOVAN [Concomitant]
  7. NEXIUM [Concomitant]
  8. CALTRATE [Concomitant]
  9. ZOFRAN [Concomitant]
  10. PROTONIX [Concomitant]
  11. ZOCOR [Concomitant]
  12. TYLENOL [Concomitant]
  13. ATIVAN [Concomitant]
  14. PHENERGAN [Concomitant]

REACTIONS (2)
  - PULMONARY EMBOLISM [None]
  - PYREXIA [None]
